FAERS Safety Report 6809261-2 (Version None)
Quarter: 2010Q2

REPORT INFORMATION
  Report Type: 
  Country: None (occurrence: None)
  Receive Date: 20100630
  Receipt Date: 20100217
  Transmission Date: 20101027
  Serious: Yes (Hospitalization, Other)
  Sender: FDA-Public Use
  Company Number: US-ASTRAZENECA-2007UW18509

PATIENT
  Age: 13946 Day
  Sex: Female
  Weight: 103.9 kg

DRUGS (16)
  1. SEROQUEL [Suspect]
     Indication: BIPOLAR DISORDER
     Route: 048
     Dates: start: 20030401, end: 20070711
  2. SEROQUEL [Suspect]
     Indication: DEPRESSION
     Route: 048
     Dates: start: 20030401, end: 20070711
  3. SEROQUEL [Suspect]
     Route: 048
     Dates: start: 20030401, end: 20070711
  4. SEROQUEL [Suspect]
     Route: 048
     Dates: start: 20030401, end: 20070711
  5. SEROQUEL [Suspect]
     Dosage: 50 MG TO 300 MG
     Route: 048
     Dates: start: 20040330
  6. SEROQUEL [Suspect]
     Dosage: 50 MG TO 300 MG
     Route: 048
     Dates: start: 20040330
  7. SEROQUEL [Suspect]
     Route: 048
     Dates: start: 20051202
  8. SEROQUEL [Suspect]
     Route: 048
     Dates: start: 20051202
  9. ABILIFY [Concomitant]
     Dosage: TOTAL DAILY DOSE 20 MG
     Dates: start: 20070601
  10. ENALAPRIL MALEATE [Concomitant]
     Dates: start: 20010729
  11. GLUCOTROL XL [Concomitant]
     Dates: start: 20010729
  12. METHYLDOPA [Concomitant]
     Dates: start: 20010729
  13. LEXAPRO [Concomitant]
     Dosage: 20 MG TO 30 MG
     Dates: start: 20040330
  14. INSULIN [Concomitant]
     Dosage: 20 UNITS TO 30 UNITS
     Dates: start: 20021008
  15. METFORMIN HCL [Concomitant]
     Dates: start: 20040330
  16. LIPITOR [Concomitant]
     Dates: start: 20010729

REACTIONS (7)
  - BLINDNESS [None]
  - BLOOD DISORDER [None]
  - DIABETES MELLITUS [None]
  - DIABETIC NEPHROPATHY [None]
  - DIABETIC NEUROPATHY [None]
  - EYE DISORDER [None]
  - OPEN ANGLE GLAUCOMA [None]
